FAERS Safety Report 6167715-9 (Version None)
Quarter: 2009Q2

REPORT INFORMATION
  Report Type: 
  Country: None (occurrence: None)
  Receive Date: 20090424
  Receipt Date: 20090409
  Transmission Date: 20091009
  Serious: Yes (Other)
  Sender: FDA-Public Use
  Company Number: AU-GENENTECH-278935

PATIENT
  Sex: Male

DRUGS (5)
  1. LUCENTIS [Suspect]
     Indication: MACULAR DEGENERATION
     Dosage: 0.05 ML, 5/WEEK
     Route: 031
     Dates: start: 20060919
  2. SOTALOL HCL [Concomitant]
     Indication: DRUG USE FOR UNKNOWN INDICATION
  3. ATACAND [Concomitant]
     Indication: DRUG USE FOR UNKNOWN INDICATION
  4. ADALAT [Concomitant]
     Indication: DRUG USE FOR UNKNOWN INDICATION
  5. SOMA [Concomitant]
     Indication: DRUG USE FOR UNKNOWN INDICATION

REACTIONS (1)
  - EYE DISORDER [None]
